FAERS Safety Report 19641843 (Version 2)
Quarter: 2021Q3

REPORT INFORMATION
  Report Type: Other
  Country: GB (occurrence: GB)
  Receive Date: 20210731
  Receipt Date: 20210805
  Transmission Date: 20211014
  Serious: No
  Sender: FDA-Public Use
  Company Number: GB-LUPIN PHARMACEUTICALS INC.-2021-12663

PATIENT
  Age: 34 Year
  Sex: Female
  Weight: 52 kg

DRUGS (4)
  1. SUMATRIPTAN. [Concomitant]
     Active Substance: SUMATRIPTAN
     Dosage: UNK (1 TABLET AT THE ONSET OF MIGRAINE ATTACK. CAN REPEAT DOSE AFTER 2 HOURS IF MIGRAINE RECURS)
     Route: 065
     Dates: start: 20210105
  2. SERTRALINE HYDROCHLORIDE TABLETS [Suspect]
     Active Substance: SERTRALINE HYDROCHLORIDE
     Indication: PRODUCT USED FOR UNKNOWN INDICATION
     Dosage: UNK
     Route: 065
  3. MIGRALEVE PINK [Concomitant]
     Indication: MIGRAINE
     Dosage: UNK (TAKE 2 PINK TABLETS AT THE ONSET OF AN ATTACK)
     Route: 065
     Dates: start: 20201229
  4. SUMATRIPTAN. [Concomitant]
     Active Substance: SUMATRIPTAN
     Indication: MIGRAINE
     Dosage: UNK (1 TABLET AT THE ONSET OF MIGRAINE ATTACK. CAN REPEAT DOSE AFTER 2 HOURS IF MIGRAINE RECURS)
     Route: 065
     Dates: start: 20210105, end: 20210129

REACTIONS (1)
  - Tremor [Not Recovered/Not Resolved]

NARRATIVE: CASE EVENT DATE: 20201101
